FAERS Safety Report 13817622 (Version 2)
Quarter: 2017Q3

REPORT INFORMATION
  Report Type: Spontaneous
  Country: US (occurrence: US)
  Receive Date: 20170731
  Receipt Date: 20170908
  Transmission Date: 20171127
  Serious: No
  Sender: FDA-Public Use
  Company Number: US-BAYER-2017-143315

PATIENT
  Age: 40 Year
  Sex: Female
  Weight: 74.38 kg

DRUGS (12)
  1. GADAVIST [Suspect]
     Active Substance: GADOBUTROL
     Indication: PROCTALGIA
  2. GADAVIST [Suspect]
     Active Substance: GADOBUTROL
     Indication: PELVIC ABSCESS
  3. XANAX [Concomitant]
     Active Substance: ALPRAZOLAM
  4. REMICADE [Concomitant]
     Active Substance: INFLIXIMAB
  5. TYLENOL [Concomitant]
     Active Substance: ACETAMINOPHEN
  6. PROMETHAZINE [Concomitant]
     Active Substance: PROMETHAZINE\PROMETHAZINE HYDROCHLORIDE
  7. DILAUDID [Concomitant]
     Active Substance: HYDROMORPHONE HYDROCHLORIDE
  8. HYDROXYZINE [Concomitant]
     Active Substance: HYDROXYZINE HYDROCHLORIDE
  9. SUBOXONE [Concomitant]
     Active Substance: BUPRENORPHINE HYDROCHLORIDE\NALOXONE HYDROCHLORIDE
  10. VITAMIN D [Concomitant]
     Active Substance: CHOLECALCIFEROL
  11. GADAVIST [Suspect]
     Active Substance: GADOBUTROL
     Indication: NUCLEAR MAGNETIC RESONANCE IMAGING
     Dosage: 7 ML, ONCE
     Route: 042
     Dates: start: 20170707, end: 20170707
  12. MULTIVITAMIN [Concomitant]
     Active Substance: VITAMINS

REACTIONS (1)
  - Urticaria [Recovered/Resolved]

NARRATIVE: CASE EVENT DATE: 20170717
